FAERS Safety Report 5337191-4 (Version None)
Quarter: 2007Q2

REPORT INFORMATION
  Report Type: 
  Country: None (occurrence: None)
  Receive Date: 20070315
  Receipt Date: 20060926
  Transmission Date: 20071010
  Serious: Yes (Life-Threatening, Hospitalization)
  Sender: FDA-Public Use
  Company Number: PHEH2006US11714

PATIENT
  Age: 6 Year
  Sex: Female
  Weight: 22.4 kg

DRUGS (3)
  1. TRILEPTAL [Suspect]
     Indication: PARTIAL SEIZURES
     Dosage: 300 MG QAM + 450 MG QPM, ORAL
     Route: 048
     Dates: start: 20060601, end: 20060813
  2. ELOCON [Concomitant]
  3. HYDROCORTISONE [Concomitant]

REACTIONS (8)
  - FALL [None]
  - GRAND MAL CONVULSION [None]
  - HEAD INJURY [None]
  - HEADACHE [None]
  - HYPONATRAEMIA [None]
  - SKIN SWELLING [None]
  - TREMOR [None]
  - VOMITING [None]
